FAERS Safety Report 18591811 (Version 4)
Quarter: 2021Q2

REPORT INFORMATION
  Report Type: Report from Study
  Country: US (occurrence: US)
  Receive Date: 20201208
  Receipt Date: 20210413
  Transmission Date: 20210717
  Serious: Yes (Death, Hospitalization, Other)
  Sender: FDA-Public Use
  Company Number: US-BRISTOL-MYERS SQUIBB COMPANY-BMS-2020-093093

PATIENT
  Age: 64 Year
  Sex: Male
  Weight: 74.8 kg

DRUGS (3)
  1. NIVOLUMAB [Suspect]
     Active Substance: NIVOLUMAB
     Indication: RENAL CELL CARCINOMA
     Dosage: 220 MILLIGRAM
     Route: 042
     Dates: start: 20201014, end: 20201014
  2. IPILIMUMAB [Suspect]
     Active Substance: IPILIMUMAB
     Indication: RENAL CELL CARCINOMA
     Dosage: 75 MILLIGRAM
     Route: 042
     Dates: start: 20201014
  3. PREDNISONE. [Suspect]
     Active Substance: PREDNISONE
     Indication: PRODUCT USED FOR UNKNOWN INDICATION
     Route: 065

REACTIONS (6)
  - Acute kidney injury [Unknown]
  - Sepsis [Unknown]
  - Cerebrovascular accident [Unknown]
  - Malignant neoplasm progression [Fatal]
  - Pneumonia [Unknown]
  - Rash maculo-papular [Recovered/Resolved]

NARRATIVE: CASE EVENT DATE: 20201022
